FAERS Safety Report 7131985-0 (Version None)
Quarter: 2010Q4

REPORT INFORMATION
  Report Type: 
  Country: None (occurrence: None)
  Receive Date: 20101124
  Receipt Date: 20101124
  Transmission Date: 20110411
  Serious: Yes (Disabling)
  Sender: FDA-Public Use
  Company Number: None

PATIENT
  Sex: Male
  Weight: 74.8435 kg

DRUGS (1)
  1. LEVAQUIN [Suspect]
     Indication: EPIDIDYMITIS
     Dosage: 500 MG. ONCE A DAY ORAL
     Route: 048
     Dates: start: 20100908, end: 20100914

REACTIONS (3)
  - JOINT STIFFNESS [None]
  - PALPITATIONS [None]
  - TENDONITIS [None]
